FAERS Safety Report 7392381 (Version 6)
Quarter: 2013Q4

REPORT INFORMATION
  Report Type: Spontaneous
  Country: US (occurrence: US)
  Receive Date: 20100519
  Receipt Date: 20131115
  Transmission Date: 20140711
  Serious: Yes (Hospitalization, Other)
  Sender: FDA-Public Use
  Company Number: US-BIOGENIDEC-2010BI016045

PATIENT
  Age: 65 Year
  Sex: Female

DRUGS (2)
  1. AVONEX [Suspect]
     Indication: MULTIPLE SCLEROSIS
     Route: 030
     Dates: start: 1998
  2. AVONEX [Suspect]
     Indication: MULTIPLE SCLEROSIS
     Route: 030
     Dates: start: 200408, end: 20121107

REACTIONS (11)
  - Renal failure chronic [Not Recovered/Not Resolved]
  - Nephrolithiasis [Recovered/Resolved]
  - Coordination abnormal [Recovered/Resolved]
  - Back pain [Recovered/Resolved]
  - General symptom [Recovered/Resolved]
  - Balance disorder [Recovered/Resolved]
  - Neuralgia [Recovered/Resolved]
  - Fatigue [Recovered/Resolved]
  - Pain [Recovered/Resolved]
  - Nausea [Recovered/Resolved]
  - Dizziness [Recovered/Resolved]
